FAERS Safety Report 5283672-1 (Version None)
Quarter: 2007Q1

REPORT INFORMATION
  Report Type: 
  Country: None (occurrence: None)
  Receive Date: 20061226
  Receipt Date: 20051027
  Transmission Date: 20070707
  Serious: Yes (Hospitalization, Other)
  Sender: FDA-Public Use
  Company Number: WAES 0510USA09351

PATIENT
  Age: 88 Year
  Sex: Female
  Weight: 49.8957 kg

DRUGS (2)
  1. ZETIA [Suspect]
     Indication: HYPERLIPIDAEMIA
     Dosage: 10MG, DAILY; PO, 10MG, DAILY; PO
     Route: 048
     Dates: start: 20030227, end: 20050701
  2. ZETIA [Suspect]
     Indication: HYPERLIPIDAEMIA
     Dosage: 10MG, DAILY; PO, 10MG, DAILY; PO
     Route: 048
     Dates: start: 20050101, end: 20051015

REACTIONS (1)
  - PANCREATITIS [None]
